FAERS Safety Report 5783087-3 (Version None)
Quarter: 2008Q2

REPORT INFORMATION
  Report Type: 
  Country: None (occurrence: None)
  Receive Date: 20080624
  Receipt Date: 20080616
  Transmission Date: 20081010
  Serious: Yes (Hospitalization, Other)
  Sender: FDA-Public Use
  Company Number: US-AMGEN-US281816

PATIENT
  Sex: Female
  Weight: 52.2 kg

DRUGS (6)
  1. ENBREL [Suspect]
     Indication: PSORIATIC ARTHROPATHY
     Route: 058
     Dates: start: 20071004, end: 20071011
  2. VITAMIN TAB [Concomitant]
     Route: 048
     Dates: start: 20071101
  3. TYLENOL [Concomitant]
     Route: 048
     Dates: start: 20071004
  4. TUMS [Concomitant]
     Route: 048
     Dates: start: 20071004
  5. INFLUENZA VACCINE [Concomitant]
     Route: 065
     Dates: start: 20071031, end: 20071031
  6. COLACE [Concomitant]
     Route: 048
     Dates: start: 20071004

REACTIONS (1)
  - MENINGITIS ASEPTIC [None]
